FAERS Safety Report 11076646 (Version 1)
Quarter: 2015Q2

REPORT INFORMATION
  Report Type: Spontaneous
  Country: FR (occurrence: FR)
  Receive Date: 20150429
  Receipt Date: 20150429
  Transmission Date: 20150821
  Serious: Yes (Death, Hospitalization, Other)
  Sender: FDA-Public Use
  Company Number: FR-TAKEDA-2015TUS005474

PATIENT
  Age: 58 Year
  Sex: Male
  Weight: 86 kg

DRUGS (6)
  1. FLUINDIONE [Suspect]
     Active Substance: FLUINDIONE
     Indication: ISCHAEMIA
  2. COLCHICINE. [Suspect]
     Active Substance: COLCHICINE
     Indication: PAIN IN EXTREMITY
     Dosage: 15 DF, UNK
     Route: 065
  3. COLCHICINE. [Suspect]
     Active Substance: COLCHICINE
     Indication: ISCHAEMIA
  4. COLCHICINE. [Suspect]
     Active Substance: COLCHICINE
     Indication: GOUT
  5. FLUINDIONE [Suspect]
     Active Substance: FLUINDIONE
     Indication: PAIN IN EXTREMITY
     Dosage: 20 DF, UNK
     Route: 065
  6. FLUINDIONE [Suspect]
     Active Substance: FLUINDIONE
     Indication: GOUT

REACTIONS (6)
  - Cardiogenic shock [Fatal]
  - Multi-organ failure [Fatal]
  - Pancytopenia [Unknown]
  - Intentional overdose [Fatal]
  - Bone marrow failure [Unknown]
  - Abdominal compartment syndrome [Unknown]
